FAERS Safety Report 8916884 (Version 1)
Quarter: 2012Q4

REPORT INFORMATION
  Report Type: 
  Country: DE (occurrence: DE)
  Receive Date: 20121120
  Receipt Date: 20121120
  Transmission Date: 20130627
  Serious: Yes (Other)
  Sender: FDA-Public Use
  Company Number: DE-AMGEN-DEUSP2012073408

PATIENT
  Age: 19 Year
  Sex: Female

DRUGS (2)
  1. NEULASTA [Suspect]
     Indication: NON-HODGKIN^S LYMPHOMA
     Dosage: 6 mg, UNK
  2. NEUPOGEN [Suspect]
     Indication: NON-HODGKIN^S LYMPHOMA
     Dosage: UNK

REACTIONS (5)
  - Bronchospasm [Unknown]
  - Angioedema [Unknown]
  - Dyspnoea [Unknown]
  - Hypersensitivity [Unknown]
  - Rash [Unknown]
